FAERS Safety Report 5826767-3 (Version None)
Quarter: 2008Q3

REPORT INFORMATION
  Report Type: 
  Country: None (occurrence: None)
  Receive Date: 20080728
  Receipt Date: 20080728
  Transmission Date: 20090109
  Serious: Yes (Life-Threatening)
  Sender: FDA-Public Use
  Company Number: None

PATIENT
  Age: 67 Year
  Sex: Male
  Weight: 99.7913 kg

DRUGS (1)
  1. MIRTAZAPINE [Suspect]
     Indication: INSOMNIA
     Dosage: 30 MG 1 / DAY OTHER
     Route: 050
     Dates: start: 20050530, end: 20050820

REACTIONS (3)
  - FATIGUE [None]
  - ILL-DEFINED DISORDER [None]
  - SOMNOLENCE [None]
